FAERS Safety Report 5703412-9 (Version None)
Quarter: 2008Q2

REPORT INFORMATION
  Report Type: 
  Country: None (occurrence: None)
  Receive Date: 20080411
  Receipt Date: 20080331
  Transmission Date: 20081010
  Serious: Yes (Hospitalization, Other)
  Sender: FDA-Public Use
  Company Number: DE-GILEAD-2008-0015168

PATIENT
  Sex: Male
  Weight: 82 kg

DRUGS (6)
  1. TRUVADA [Suspect]
     Indication: HIV INFECTION
     Route: 048
  2. QUANTALAN [Suspect]
     Indication: DIARRHOEA
     Route: 048
     Dates: start: 20080122, end: 20080129
  3. VIRAMUNE 200 [Concomitant]
     Indication: HIV INFECTION
     Route: 048
     Dates: start: 20030101
  4. NAC 200 [Concomitant]
     Route: 048
     Dates: start: 20071217
  5. CRANOC 80 [Concomitant]
     Route: 048
     Dates: start: 20020101
  6. SODIUM HYDROGEN CARBONATE [Concomitant]
     Route: 048
     Dates: start: 20080114

REACTIONS (3)
  - DIARRHOEA [None]
  - FLATULENCE [None]
  - SENSORY DISTURBANCE [None]
